FAERS Safety Report 9808021 (Version 1)
Quarter: 2014Q1

REPORT INFORMATION
  Report Type: Report from Study
  Country: US (occurrence: US)
  Receive Date: 20140110
  Receipt Date: 20140110
  Transmission Date: 20141002
  Serious: Yes (Hospitalization)
  Sender: FDA-Public Use
  Company Number: US-ROCHE-1327819

PATIENT
  Age: 51 Year
  Sex: Male

DRUGS (40)
  1. RITUXIMAB [Suspect]
     Indication: ACUTE GRAFT VERSUS HOST DISEASE
     Route: 042
     Dates: start: 20111012
  2. RITUXIMAB [Suspect]
     Route: 042
     Dates: start: 20111102
  3. OXYCONTIN [Concomitant]
     Route: 048
  4. ACYCLOVIR [Concomitant]
     Route: 048
  5. URSODIOL [Concomitant]
     Route: 048
  6. SIMVASTATIN [Concomitant]
     Route: 048
  7. PROGRAF [Concomitant]
     Route: 048
  8. OXYBUTYNIN [Concomitant]
     Route: 048
  9. COLACE [Concomitant]
     Route: 048
  10. ATIVAN [Concomitant]
     Route: 048
  11. MAGNESIUM OXIDE [Concomitant]
     Route: 048
  12. REGLAN [Concomitant]
     Route: 048
  13. CELLCEPT [Concomitant]
     Route: 048
  14. NEXIUM [Concomitant]
     Route: 048
  15. AMBIEN [Concomitant]
     Route: 048
  16. MIRALAX [Concomitant]
     Route: 048
  17. BACTRIM DS [Concomitant]
     Route: 048
  18. CEFEPIME [Concomitant]
  19. VANCOMYCIN [Concomitant]
  20. LINEZOLID [Concomitant]
  21. AMPICILLIN [Concomitant]
  22. NEUPOGEN [Concomitant]
     Route: 065
  23. CYTARABINE [Concomitant]
  24. BUSULFAN [Concomitant]
  25. FLUDARABINE [Concomitant]
  26. CIPROFLOXACIN [Concomitant]
     Route: 048
  27. DAPSONE [Concomitant]
  28. AUGMENTIN [Concomitant]
     Route: 048
  29. XANAX [Concomitant]
  30. AMLODIPINE [Concomitant]
     Route: 048
  31. CELEXA (UNITED STATES) [Concomitant]
     Route: 048
  32. IMODIUM [Concomitant]
     Route: 065
  33. DITROPAN [Concomitant]
     Route: 048
  34. OXYCODONE [Concomitant]
  35. PREDNISONE [Concomitant]
     Route: 048
  36. ZOCOR [Concomitant]
     Route: 048
  37. TACROLIMUS [Concomitant]
     Route: 048
  38. RESTORIL (UNITED STATES) [Concomitant]
     Route: 048
  39. BIAFINE (UNITED STATES) [Concomitant]
  40. MEPILEX (UNITED STATES) [Concomitant]

REACTIONS (2)
  - BK virus infection [Unknown]
  - Cystitis haemorrhagic [Unknown]
